FAERS Safety Report 12213977 (Version 1)
Quarter: 2016Q1

REPORT INFORMATION
  Report Type: Spontaneous
  Country: US (occurrence: None)
  Receive Date: 20160325
  Receipt Date: 20160325
  Transmission Date: 20160526
  Serious: No
  Sender: FDA-Public Use
  Company Number: None

PATIENT
  Age: 56 Year
  Sex: Male

DRUGS (1)
  1. BEXAROTENE. [Suspect]
     Active Substance: BEXAROTENE
     Indication: T-CELL LYMPHOMA
     Dosage: 75MG 4 CAPS QD FOR 14 DAY BY MOUTH
     Route: 048
     Dates: start: 20160108, end: 20160323

REACTIONS (2)
  - Blood cholesterol increased [None]
  - Thyroid disorder [None]

NARRATIVE: CASE EVENT DATE: 20160323
